FAERS Safety Report 13400712 (Version 13)
Quarter: 2020Q1

REPORT INFORMATION
  Report Type: Report from Study
  Country: CA (occurrence: CA)
  Receive Date: 20170404
  Receipt Date: 20200124
  Transmission Date: 20200409
  Serious: Yes (Hospitalization, Other)
  Sender: FDA-Public Use
  Company Number: PHHY2015CA020949

PATIENT
  Age: 68 Year
  Sex: Female

DRUGS (9)
  1. SANDOSTATIN LAR DEPOT [Suspect]
     Active Substance: OCTREOTIDE ACETATE
     Indication: NEUROENDOCRINE TUMOUR
     Dosage: 30 MG, QMO (ONCE A MONTH)
     Route: 030
     Dates: start: 20090401
  2. METOPROLOL. [Concomitant]
     Active Substance: METOPROLOL
     Indication: PRODUCT USED FOR UNKNOWN INDICATION
     Dosage: 175 MG, BID
     Route: 048
  3. SANDOSTATIN LAR DEPOT [Suspect]
     Active Substance: OCTREOTIDE ACETATE
     Dosage: 40 MG, QMO
     Route: 030
     Dates: start: 20170428
  4. SANDOSTATIN LAR DEPOT [Suspect]
     Active Substance: OCTREOTIDE ACETATE
     Dosage: 30 MG, QMO (ONCE A MONTH)
     Route: 030
     Dates: end: 20170327
  5. COUMADIN [Concomitant]
     Active Substance: WARFARIN SODIUM
     Indication: PRODUCT USED FOR UNKNOWN INDICATION
     Dosage: 4 MG FOR 4 DAYS
     Route: 065
  6. SANDOSTATIN LAR DEPOT [Suspect]
     Active Substance: OCTREOTIDE ACETATE
     Dosage: 30 MG, QMO (ONCE A MONTH)
     Route: 030
  7. AMOXI-CLAV [Concomitant]
     Active Substance: AMOXICILLIN\CLAVULANATE POTASSIUM
     Indication: PRODUCT USED FOR UNKNOWN INDICATION
     Dosage: 875/125 MG, QD (FOR 10 DAYS)
     Route: 065
     Dates: start: 20170121
  8. SANDOSTATIN LAR DEPOT [Suspect]
     Active Substance: OCTREOTIDE ACETATE
     Dosage: 30 MG, QMO
     Route: 030
  9. COUMADIN [Concomitant]
     Active Substance: WARFARIN SODIUM
     Dosage: 6 MG FOR 3 DAYS
     Route: 065

REACTIONS (23)
  - Pneumonia [Unknown]
  - Hot flush [Unknown]
  - Syringe issue [Unknown]
  - Needle issue [Unknown]
  - Injection site reaction [Recovered/Resolved]
  - Hypertension [Unknown]
  - Feeling abnormal [Unknown]
  - Fatigue [Recovering/Resolving]
  - Injection site pain [Recovered/Resolved]
  - International normalised ratio abnormal [Unknown]
  - Aneurysm [Unknown]
  - Product administration error [Unknown]
  - Diarrhoea [Unknown]
  - Injection site mass [Unknown]
  - Injection site haemorrhage [Unknown]
  - Injection site induration [Recovered/Resolved]
  - Product quality issue [Unknown]
  - Chest pain [Unknown]
  - Neck pain [Unknown]
  - Asthenia [Unknown]
  - Palpitations [Unknown]
  - Injection site bruising [Unknown]
  - Body temperature decreased [Unknown]

NARRATIVE: CASE EVENT DATE: 20150217
